FAERS Safety Report 21227787 (Version 2)
Quarter: 2022Q3

REPORT INFORMATION
  Report Type: Spontaneous
  Country: DE (occurrence: DE)
  Receive Date: 20220818
  Receipt Date: 20220823
  Transmission Date: 20221026
  Serious: Yes (Other)
  Sender: FDA-Public Use
  Company Number: DE-Merck Healthcare KGaA-9340232

PATIENT
  Sex: Female

DRUGS (14)
  1. GABAPENTIN [Interacting]
     Active Substance: GABAPENTIN
     Dosage: 800 MG, 3X/DAY Q8HR (AT 8:00, AT 14.00 AND AT 22.00)
     Route: 065
  2. PANTOPRAZOLE [Interacting]
     Active Substance: PANTOPRAZOLE
     Dosage: 20 MG, 1X/DAY QD
     Route: 065
  3. ALLOPURINOL [Interacting]
     Active Substance: ALLOPURINOL
     Dosage: 100 MG, 1X/DAY QD
     Route: 065
  4. HERBALS [Interacting]
     Active Substance: HERBALS
     Dosage: 4X/DAY (AT 8:00, 14.00, 20.00 AND 22.00)
  5. BACLOFEN [Interacting]
     Active Substance: BACLOFEN
     Dosage: 10 MG AT 1:00, 25 MG AT 8:00, 25 MG AT 14.00 AND 15 MG AT 20.00 (ONLY IF NEEDED)
     Route: 065
  6. DOXEPIN [Interacting]
     Active Substance: DOXEPIN
     Dosage: 5 MG, 1X/DAY QD
     Route: 065
  7. GLUCOPHAGE [Interacting]
     Active Substance: METFORMIN HYDROCHLORIDE
     Indication: Type 2 diabetes mellitus
     Dosage: 0.5 DF, 2X/DAY
     Route: 065
  8. GLUCOPHAGE [Interacting]
     Active Substance: METFORMIN HYDROCHLORIDE
     Dosage: 0.5 DF, 2X/DAY (RESTARTED)
     Route: 065
  9. BISACODYL [Interacting]
     Active Substance: BISACODYL
     Dosage: 10 DROP, AS NEEDED (10 DROPS IN THE EVENING /NIGHT BEFORE THE DAY OF DRAINAGE)
     Route: 065
  10. SODIUM BICARBONATE\SODIUM PHOSPHATE, MONOBASIC ANHYDROUS [Interacting]
     Active Substance: SODIUM BICARBONATE\SODIUM PHOSPHATE, MONOBASIC, ANHYDROUS
     Dosage: AS NEEDED (2, UNSPECIFIED UNIT) AT 8:00 EVERY 2ND DAY BEFORE SHOWERING FOR DRAINAGE)
     Route: 065
  11. LEVOTHYROXINE SODIUM [Interacting]
     Active Substance: LEVOTHYROXINE SODIUM
     Dosage: (100 UNSPECIFIED UNIT) AT 7:00 AND 125 UNSPECIFIED UNITS ON MON, TUE, THU, FRI, SAT
     Route: 065
  12. TROSPIUM CHLORIDE [Interacting]
     Active Substance: TROSPIUM CHLORIDE
     Dosage: 45 MG, 1X/DAY QD
     Route: 065
  13. TAPENTADOL [Interacting]
     Active Substance: TAPENTADOL
     Dosage: 50 MG, 3X/DAY Q8HR (AT 8:00, AT 14.00 AND AT 22.00)
     Route: 065
  14. VALSARTAN [Interacting]
     Active Substance: VALSARTAN
     Dosage: 2X/DAY (160 MG AT 8:00 AND 80 MG AT 22:00)
     Route: 065

REACTIONS (14)
  - Autoimmune thyroiditis [Unknown]
  - Polyarthritis [Unknown]
  - Muscle spasticity [Unknown]
  - Urine analysis abnormal [Unknown]
  - Illness [Unknown]
  - Sensory disturbance [Unknown]
  - Blood glucose increased [Unknown]
  - Back pain [Not Recovered/Not Resolved]
  - Neuralgia [Not Recovered/Not Resolved]
  - Drug interaction [Unknown]
  - Hypertension [Unknown]
  - Scar [Unknown]
  - Wrong technique in product usage process [Unknown]
  - Treatment noncompliance [Unknown]
